FAERS Safety Report 25897980 (Version 1)
Quarter: 2025Q4

REPORT INFORMATION
  Report Type: Spontaneous
  Country: JP (occurrence: JP)
  Receive Date: 20251008
  Receipt Date: 20251008
  Transmission Date: 20260117
  Serious: Yes (Other)
  Sender: PURDUE
  Company Number: JP-NAPPMUNDI-GBR-2025-0129552

PATIENT
  Age: 81 Year
  Sex: Male

DRUGS (1)
  1. OXYCODONE HYDROCHLORIDE [Suspect]
     Active Substance: OXYCODONE HYDROCHLORIDE
     Indication: Product used for unknown indication
     Dosage: 5 MILLIGRAM, PRN
     Route: 048

REACTIONS (1)
  - Hallucination [Unknown]
